FAERS Safety Report 7346315-9 (Version None)
Quarter: 2011Q1

REPORT INFORMATION
  Report Type: 
  Country: None (occurrence: None)
  Receive Date: 20110311
  Receipt Date: 20110120
  Transmission Date: 20110831
  Serious: No
  Sender: FDA-Public Use
  Company Number: A0908102A

PATIENT
  Age: 19 Month
  Sex: Female

DRUGS (1)
  1. VUSION [Suspect]
     Route: 061

REACTIONS (1)
  - DRUG INEFFECTIVE [None]
